FAERS Safety Report 6190241-8 (Version None)
Quarter: 2009Q2

REPORT INFORMATION
  Report Type: 
  Country: None (occurrence: None)
  Receive Date: 20090513
  Receipt Date: 20090513
  Transmission Date: 20091009
  Serious: Yes (Other)
  Sender: FDA-Public Use
  Company Number: None

PATIENT
  Age: 53 Year
  Sex: Male
  Weight: 149.687 kg

DRUGS (1)
  1. PANITUMUMAB AMGEN [Suspect]
     Indication: COLON CANCER METASTATIC
     Dosage: 916 MG ONCE IV
     Route: 042
     Dates: start: 20090429, end: 20090429

REACTIONS (1)
  - BLOOD BILIRUBIN INCREASED [None]
